FAERS Safety Report 14895156 (Version 4)
Quarter: 2018Q4

REPORT INFORMATION
  Report Type: Spontaneous
  Country: US (occurrence: US)
  Receive Date: 20180515
  Receipt Date: 20181126
  Transmission Date: 20190204
  Serious: No
  Sender: FDA-Public Use
  Company Number: US-PFIZER INC-2017382285

PATIENT
  Age: 17 Year
  Sex: Male

DRUGS (9)
  1. XELJANZ [Suspect]
     Active Substance: TOFACITINIB CITRATE
     Indication: ALOPECIA UNIVERSALIS
     Dosage: 5 MG, 2X/DAY
     Route: 048
  2. LATISSE [Concomitant]
     Active Substance: BIMATOPROST
     Indication: HYPERTRICHOSIS
     Dosage: UNK (DROPS)
  3. XELJANZ [Suspect]
     Active Substance: TOFACITINIB CITRATE
     Indication: ALOPECIA
     Dosage: 5 MG, 2X/DAY (BID )
     Route: 048
     Dates: start: 20180411
  4. CLOBETASOL [Concomitant]
     Active Substance: CLOBETASOL
     Indication: ALOPECIA
     Dosage: UNK (0.05% SPRAY)
  5. BETAMETHASONE DIPROPIONATE. [Concomitant]
     Active Substance: BETAMETHASONE DIPROPIONATE
     Dosage: UNK
  6. KENALOG [Concomitant]
     Active Substance: TRIAMCINOLONE ACETONIDE
     Dosage: UNK
  7. TOPICORT [Concomitant]
     Active Substance: DESOXIMETASONE
     Dosage: UNK
  8. CLOBETASOL [Concomitant]
     Active Substance: CLOBETASOL
     Dosage: UNK, 2X/DAY (BID)
     Dates: start: 2017
  9. LATISSE [Concomitant]
     Active Substance: BIMATOPROST
     Dosage: UNK, DAILY (QHS)
     Dates: start: 2017

REACTIONS (5)
  - Upper respiratory tract congestion [Recovering/Resolving]
  - Nasopharyngitis [Unknown]
  - Rhinorrhoea [Unknown]
  - Nasal congestion [Unknown]
  - Drug effective for unapproved indication [Unknown]

NARRATIVE: CASE EVENT DATE: 201805
